FAERS Safety Report 7650219-1 (Version None)
Quarter: 2011Q3

REPORT INFORMATION
  Report Type: 
  Country: None (occurrence: None)
  Receive Date: 20110802
  Receipt Date: 20110729
  Transmission Date: 20111222
  Serious: Yes (Other)
  Sender: FDA-Public Use
  Company Number: US-SANOFI-AVENTIS-2011SA048891

PATIENT
  Sex: Male

DRUGS (5)
  1. MULTAQ [Suspect]
     Indication: ATRIAL FIBRILLATION
     Route: 048
     Dates: start: 20100501
  2. LIPITOR [Suspect]
     Route: 065
     Dates: start: 20100501, end: 20100701
  3. FINASTERIDE [Concomitant]
     Dates: start: 20100801
  4. MULTAQ [Suspect]
     Route: 048
     Dates: end: 20110101
  5. GABAPENTIN [Concomitant]

REACTIONS (5)
  - CONDITION AGGRAVATED [None]
  - PROSTATE CANCER [None]
  - LETHARGY [None]
  - UNDERDOSE [None]
  - HEART RATE DECREASED [None]
